FAERS Safety Report 8126174-7 (Version None)
Quarter: 2012Q1

REPORT INFORMATION
  Report Type: 
  Country: None (occurrence: None)
  Receive Date: 20120209
  Receipt Date: 20120206
  Transmission Date: 20120608
  Serious: Yes (Hospitalization)
  Sender: FDA-Public Use
  Company Number: PHEH2011US012282

PATIENT
  Sex: Female

DRUGS (10)
  1. REVLIMID [Concomitant]
     Dosage: 5 MG, UNK
     Route: 048
     Dates: start: 20090910
  2. CALCIUM ACETATE [Concomitant]
     Dosage: 667 MG, DAILY
     Dates: start: 20090910
  3. CALCIUM D3 [Concomitant]
     Dates: start: 20110228
  4. VIDAZA [Concomitant]
     Dosage: 100 MG, UNK
     Dates: start: 20110228
  5. IBUPROFEN [Concomitant]
     Dosage: 200 MG, DAILY
     Route: 048
     Dates: start: 20090910
  6. VITAMIN B 1-6-12 [Concomitant]
     Dosage: 100 MG, DAILY
     Dates: start: 20110228
  7. MULTI-VITAMINS [Concomitant]
     Route: 048
     Dates: start: 20090910
  8. LOVASTAN [Concomitant]
     Dates: start: 20110408
  9. EXJADE [Suspect]
     Indication: MYELODYSPLASTIC SYNDROME
     Dosage: 1500 MG, DAILY
     Route: 048
     Dates: start: 20090908
  10. MEVACOR [Concomitant]
     Dosage: 20 MG, DAILY
     Route: 048
     Dates: start: 20090910

REACTIONS (2)
  - PYREXIA [None]
  - CLOSTRIDIAL INFECTION [None]
